FAERS Safety Report 5829722-2 (Version None)
Quarter: 2008Q3

REPORT INFORMATION
  Report Type: 
  Country: None (occurrence: None)
  Receive Date: 20080729
  Receipt Date: 20080718
  Transmission Date: 20090109
  Serious: Yes (Hospitalization)
  Sender: FDA-Public Use
  Company Number: 20085411

PATIENT
  Age: 66 Year
  Sex: Male

DRUGS (5)
  1. LIORESAL [Suspect]
     Indication: MUSCLE SPASTICITY
     Dosage: \MCG, DAILY, INTRATHECAL
     Route: 037
  2. BUPIVACAINE [Concomitant]
  3. ACTIQ POPS [Concomitant]
  4. EFFEXOR XR [Concomitant]
  5. NAMENDA [Concomitant]

REACTIONS (12)
  - AGITATION [None]
  - BLOOD CREATINE PHOSPHOKINASE INCREASED [None]
  - CARDIAC ENZYMES INCREASED [None]
  - DYSGEUSIA [None]
  - ELECTROLYTE IMBALANCE [None]
  - INSOMNIA [None]
  - NEUROLOGICAL SYMPTOM [None]
  - PAIN [None]
  - PAROSMIA [None]
  - RESTLESSNESS [None]
  - SEROTONIN SYNDROME [None]
  - WHITE BLOOD CELL COUNT DECREASED [None]
